FAERS Safety Report 11560712 (Version 4)
Quarter: 2015Q4

REPORT INFORMATION
  Report Type: Spontaneous
  Country: FI (occurrence: FI)
  Receive Date: 20150928
  Receipt Date: 20151123
  Transmission Date: 20160304
  Serious: Yes (Other)
  Sender: FDA-Public Use
  Company Number: FI-ASTELLAS-2015US034273

PATIENT
  Age: 63 Year
  Sex: Female

DRUGS (2)
  1. BETMIGA [Suspect]
     Active Substance: MIRABEGRON
     Indication: MICTURITION URGENCY
     Dosage: UNK UNK, UNKNOWN FREQ.
     Route: 065
     Dates: start: 20130930, end: 20150901
  2. TAMOXIFEN [Interacting]
     Active Substance: TAMOXIFEN
     Indication: BREAST CANCER
     Dosage: UNK, UNKNOWN FREQ.
     Route: 065
     Dates: start: 201212

REACTIONS (2)
  - Inhibitory drug interaction [Unknown]
  - Breast cancer recurrent [Unknown]

NARRATIVE: CASE EVENT DATE: 201509
